FAERS Safety Report 24193235 (Version 1)
Quarter: 2024Q3

REPORT INFORMATION
  Report Type: Spontaneous
  Country: US (occurrence: None)
  Receive Date: 20240809
  Receipt Date: 20240809
  Transmission Date: 20241017
  Serious: No
  Sender: ASTRAZENECA
  Company Number: 2024A180133

PATIENT
  Age: 79 Year
  Sex: Male

DRUGS (1)
  1. PRILOSEC OTC [Suspect]
     Active Substance: OMEPRAZOLE MAGNESIUM
     Indication: Gastrooesophageal reflux disease
     Dosage: 20 MILLIGRAM, 1 /DAY
     Route: 048
     Dates: start: 2004

REACTIONS (3)
  - Pain in extremity [Unknown]
  - Product package associated injury [Unknown]
  - Product packaging difficult to open [Unknown]
